FAERS Safety Report 6369642-0 (Version None)
Quarter: 2009Q3

REPORT INFORMATION
  Report Type: 
  Country: None (occurrence: None)
  Receive Date: 20090923
  Receipt Date: 20090914
  Transmission Date: 20100115
  Serious: Yes (Hospitalization)
  Sender: FDA-Public Use
  Company Number: JP-ASTRAZENECA-2009SE14051

PATIENT
  Age: 70 Year
  Sex: Male
  Weight: 74 kg

DRUGS (3)
  1. BLOPRESS [Suspect]
     Indication: HYPERTENSION
     Route: 048
     Dates: start: 20060812, end: 20071101
  2. BLOPRESS [Suspect]
     Route: 048
  3. CALCIUM CHANNEL BLOCKERS [Concomitant]
     Indication: HYPERTENSION
     Route: 065

REACTIONS (2)
  - CEREBELLAR HAEMORRHAGE [None]
  - DIABETES MELLITUS [None]
